FAERS Safety Report 23625437 (Version 3)
Quarter: 2024Q4

REPORT INFORMATION
  Report Type: Report from Study
  Country: US (occurrence: US)
  Receive Date: 20240313
  Receipt Date: 20241015
  Transmission Date: 20250115
  Serious: Yes (Other)
  Sender: ROCHE
  Company Number: US-ROCHE-3521605

PATIENT
  Sex: Female

DRUGS (1)
  1. XOLAIR [Suspect]
     Active Substance: OMALIZUMAB
     Indication: Mast cell activation syndrome
     Route: 065

REACTIONS (5)
  - Anaphylactic reaction [Unknown]
  - Fatigue [Unknown]
  - Sleep disorder [Unknown]
  - Arthralgia [Unknown]
  - Headache [Unknown]
